FAERS Safety Report 8021386-5 (Version None)
Quarter: 2011Q4

REPORT INFORMATION
  Report Type: 
  Country: None (occurrence: None)
  Receive Date: 20111230
  Receipt Date: 20111230
  Transmission Date: 20120403
  Serious: Yes (Hospitalization)
  Sender: FDA-Public Use
  Company Number: None

PATIENT
  Age: 83 Year
  Sex: Male
  Weight: 103.5 kg

DRUGS (1)
  1. HYDROXYZINE [Suspect]
     Indication: ANXIETY
     Dosage: 25 MG TID PO
     Route: 048
     Dates: start: 20090204, end: 20100514

REACTIONS (6)
  - FALL [None]
  - COGNITIVE DISORDER [None]
  - DELIRIUM [None]
  - ANTICHOLINERGIC SYNDROME [None]
  - CONFUSIONAL STATE [None]
  - BALANCE DISORDER [None]
